FAERS Safety Report 26204146 (Version 1)
Quarter: 2025Q4

REPORT INFORMATION
  Report Type: Report from Study
  Country: IN (occurrence: IN)
  Receive Date: 20251226
  Receipt Date: 20251226
  Transmission Date: 20260117
  Serious: Yes (Other)
  Sender: NOVARTIS
  Company Number: IN-002147023-NVSC2025IN117247

PATIENT
  Age: 37 Year
  Sex: Female
  Weight: 41.2 kg

DRUGS (4)
  1. RIBOCICLIB [Suspect]
     Active Substance: RIBOCICLIB
     Indication: Breast cancer metastatic
     Dosage: 200 MG, TID
     Route: 048
  2. RIBOCICLIB [Suspect]
     Active Substance: RIBOCICLIB
     Dosage: 200 MG, BID
     Route: 048
     Dates: start: 20250621
  3. TAMOXIFEN [Concomitant]
     Active Substance: TAMOXIFEN
     Indication: Product used for unknown indication
     Dosage: UNK
     Route: 065
     Dates: end: 201908
  4. PACLITAXEL [Concomitant]
     Active Substance: PACLITAXEL
     Indication: Product used for unknown indication
     Dosage: UNK, (RECEIVED 12 CYCLES OF INJ)
     Route: 065

REACTIONS (13)
  - Metastases to lymph nodes [Unknown]
  - Electrocardiogram QT prolonged [Unknown]
  - Breast cancer recurrent [Unknown]
  - Neck pain [Unknown]
  - Nodule [Unknown]
  - Pruritus [Unknown]
  - Ulcer [Unknown]
  - Tumour marker abnormal [Unknown]
  - Vaginal haemorrhage [Unknown]
  - Full blood count abnormal [Unknown]
  - Heart rate increased [Unknown]
  - Inappropriate schedule of product administration [Unknown]
  - Off label use [Unknown]

NARRATIVE: CASE EVENT DATE: 20250619
